FAERS Safety Report 4866207-4 (Version None)
Quarter: 2005Q4

REPORT INFORMATION
  Report Type: 
  Country: None (occurrence: None)
  Receive Date: 20051221
  Receipt Date: 20051213
  Transmission Date: 20060501
  Serious: Yes (Hospitalization)
  Sender: FDA-Public Use
  Company Number: 163-20785-05090080

PATIENT
  Age: 43 Year
  Sex: Female

DRUGS (1)
  1. THALOMID [Suspect]
     Indication: MULTIPLE MYELOMA
     Dosage: 200 MG, DAILY, ORAL
     Route: 048
     Dates: start: 20010728

REACTIONS (5)
  - ANAL HAEMORRHAGE [None]
  - CANDIDA SEPSIS [None]
  - CLOSTRIDIUM COLITIS [None]
  - ESCHERICHIA SEPSIS [None]
  - RECTAL HAEMORRHAGE [None]
